FAERS Safety Report 6865025-5 (Version None)
Quarter: 2010Q3

REPORT INFORMATION
  Report Type: 
  Country: None (occurrence: None)
  Receive Date: 20100721
  Receipt Date: 20080702
  Transmission Date: 20110219
  Serious: No
  Sender: FDA-Public Use
  Company Number: US-PFIZER INC-2008031936

PATIENT
  Sex: Female
  Weight: 75 kg

DRUGS (1)
  1. CHANTIX [Suspect]
     Indication: SMOKING CESSATION THERAPY
     Dates: start: 20080301, end: 20080406

REACTIONS (4)
  - BALANCE DISORDER [None]
  - FEELING ABNORMAL [None]
  - TINNITUS [None]
  - VISUAL IMPAIRMENT [None]
